FAERS Safety Report 9728494 (Version 1)
Quarter: 2013Q4

REPORT INFORMATION
  Report Type: Spontaneous
  Country: US (occurrence: None)
  Receive Date: 20131203
  Receipt Date: 20131203
  Transmission Date: 20140711
  Serious: Yes (Other)
  Sender: FDA-Public Use
  Company Number: None

PATIENT
  Age: 28 Year
  Sex: Female

DRUGS (1)
  1. METFORMIN ER [Suspect]
     Indication: POLYCYSTIC OVARIES
     Dosage: 2 BID ORAL
     Dates: start: 20130809, end: 20131202

REACTIONS (1)
  - Diarrhoea [None]
